FAERS Safety Report 7265461-1 (Version None)
Quarter: 2011Q1

REPORT INFORMATION
  Report Type: 
  Country: None (occurrence: None)
  Receive Date: 20110131
  Receipt Date: 20110121
  Transmission Date: 20110831
  Serious: No
  Sender: FDA-Public Use
  Company Number: US-JNJFOC-20110106370

PATIENT
  Age: 39 Year
  Sex: Male

DRUGS (3)
  1. INVEGA SUSTENNA [Suspect]
     Indication: ILL-DEFINED DISORDER
     Route: 030
  2. DEPAKOTE [Concomitant]
     Indication: ILL-DEFINED DISORDER
     Route: 065
  3. CYMBALTA [Concomitant]
     Indication: ILL-DEFINED DISORDER
     Route: 065

REACTIONS (3)
  - GAIT DISTURBANCE [None]
  - MASKED FACIES [None]
  - EXTRAPYRAMIDAL DISORDER [None]
